FAERS Safety Report 19290554 (Version 1)
Quarter: 2021Q2

REPORT INFORMATION
  Report Type: Spontaneous
  Country: US (occurrence: US)
  Receive Date: 20210521
  Receipt Date: 20210521
  Transmission Date: 20210717
  Serious: No
  Sender: FDA-Public Use
  Company Number: US-SA-2020SA087667

PATIENT
  Age: 27 Year
  Sex: Male

DRUGS (2)
  1. CAPRELSA [Suspect]
     Active Substance: VANDETANIB
     Dosage: 300 UNK
     Route: 048
     Dates: start: 20190921
  2. CAPRELSA [Suspect]
     Active Substance: VANDETANIB
     Indication: THYROID CANCER
     Dosage: 300 MG, QD
     Route: 048
     Dates: start: 20190912

REACTIONS (7)
  - Visual impairment [Unknown]
  - Stress [Unknown]
  - Liver function test increased [Unknown]
  - Arthralgia [Unknown]
  - COVID-19 [Unknown]
  - Abdominal pain [Unknown]
  - Myalgia [Unknown]
